FAERS Safety Report 7802319-0 (Version None)
Quarter: 2011Q4

REPORT INFORMATION
  Report Type: 
  Country: None (occurrence: None)
  Receive Date: 20111007
  Receipt Date: 20110923
  Transmission Date: 20120403
  Serious: Yes (Death, Hospitalization)
  Sender: FDA-Public Use
  Company Number: GB-MYLANLABS-2011S1020000

PATIENT
  Age: 27 Year
  Sex: Female

DRUGS (4)
  1. CO-DYDRAMOL [Suspect]
     Indication: PRODUCT USED FOR UNKNOWN INDICATION
  2. FERROUS SULFATE TAB [Suspect]
     Indication: PRODUCT USED FOR UNKNOWN INDICATION
  3. IBUPROFEN [Suspect]
     Indication: PRODUCT USED FOR UNKNOWN INDICATION
  4. DICLOFENAC [Suspect]
     Indication: PRODUCT USED FOR UNKNOWN INDICATION

REACTIONS (22)
  - HAEMATEMESIS [None]
  - BLOOD IRON INCREASED [None]
  - INTERNATIONAL NORMALISED RATIO INCREASED [None]
  - HEPATOTOXICITY [None]
  - RESPIRATORY RATE INCREASED [None]
  - MULTIPLE DRUG OVERDOSE [None]
  - BLOOD CREATININE INCREASED [None]
  - ANAEMIA [None]
  - BLOOD PHOSPHORUS DECREASED [None]
  - MULTI-ORGAN FAILURE [None]
  - ANALGESIC DRUG LEVEL INCREASED [None]
  - WHITE BLOOD CELL COUNT INCREASED [None]
  - HYPOTENSION [None]
  - COAGULOPATHY [None]
  - SINUS TACHYCARDIA [None]
  - ELECTROLYTE IMBALANCE [None]
  - BLOOD PRESSURE DIASTOLIC DECREASED [None]
  - BLOOD CALCIUM DECREASED [None]
  - METABOLIC ACIDOSIS [None]
  - BLOOD LACTIC ACID INCREASED [None]
  - ALANINE AMINOTRANSFERASE INCREASED [None]
  - BLOOD BILIRUBIN INCREASED [None]
